FAERS Safety Report 8590737-5 (Version None)
Quarter: 2012Q3

REPORT INFORMATION
  Report Type: 
  Country: None (occurrence: None)
  Receive Date: 20120731
  Receipt Date: 20120716
  Transmission Date: 20120928
  Serious: Yes (Other)
  Sender: FDA-Public Use
  Company Number: 2012-01103

PATIENT
  Sex: Male

DRUGS (2)
  1. LITHIUM CARBONATE [Concomitant]
     Indication: PRODUCT USED FOR UNKNOWN INDICATION
  2. QUETIAPINE [Suspect]
     Indication: PRODUCT USED FOR UNKNOWN INDICATION
     Dosage: UNKNOWN (300 MG, UNK) , UNKNOWN
     Dates: start: 20120627

REACTIONS (5)
  - TARDIVE DYSKINESIA [None]
  - ERECTILE DYSFUNCTION [None]
  - ANHEDONIA [None]
  - SEDATION [None]
  - BRUXISM [None]
